FAERS Safety Report 7709222-5 (Version None)
Quarter: 2011Q3

REPORT INFORMATION
  Report Type: 
  Country: None (occurrence: None)
  Receive Date: 20110819
  Receipt Date: 20110815
  Transmission Date: 20111222
  Serious: Yes (Other)
  Sender: FDA-Public Use
  Company Number: DSA_47184_2011

PATIENT
  Sex: Female

DRUGS (3)
  1. XENAZINE [Suspect]
     Indication: TARDIVE DYSKINESIA
     Dosage: SEE IMAGEE
     Route: 048
     Dates: start: 20110714, end: 20110714
  2. XENAZINE [Suspect]
     Indication: TARDIVE DYSKINESIA
     Dosage: SEE IMAGEE
     Route: 048
     Dates: start: 20110716
  3. XENAZINE [Suspect]
     Indication: TARDIVE DYSKINESIA
     Dosage: SEE IMAGEE
     Route: 048
     Dates: start: 20110715, end: 20110715

REACTIONS (4)
  - HALLUCINATION [None]
  - CONFUSIONAL STATE [None]
  - DISORIENTATION [None]
  - INCORRECT DOSE ADMINISTERED [None]
